FAERS Safety Report 5624658-4 (Version None)
Quarter: 2008Q1

REPORT INFORMATION
  Report Type: 
  Country: None (occurrence: None)
  Receive Date: 20080208
  Receipt Date: 20080131
  Transmission Date: 20080703
  Serious: Yes (Hospitalization)
  Sender: FDA-Public Use
  Company Number: 023300

PATIENT
  Age: 77 Year
  Sex: Female

DRUGS (1)
  1. WARFARIN SODIUM [Suspect]
     Indication: ATRIAL FIBRILLATION
     Dosage: 5 MG, QD, ORAL
     Route: 048
     Dates: end: 20080130

REACTIONS (3)
  - BLOOD URINE PRESENT [None]
  - HAEMORRHAGE [None]
  - URINARY TRACT INFECTION [None]
